FAERS Safety Report 16304829 (Version 2)
Quarter: 2019Q2

REPORT INFORMATION
  Report Type: Spontaneous
  Country: US (occurrence: US)
  Receive Date: 20190513
  Receipt Date: 20190529
  Transmission Date: 20190711
  Serious: Yes (Hospitalization)
  Sender: FDA-Public Use
  Company Number: US-ACTELION-A-NJ2019-190061

PATIENT
  Sex: Female

DRUGS (3)
  1. TRACLEER [Suspect]
     Active Substance: BOSENTAN
     Dosage: 15.6 MG, BID
     Route: 048
     Dates: start: 20190430
  2. TRACLEER [Suspect]
     Active Substance: BOSENTAN
     Indication: PULMONARY HYPERTENSION
     Dosage: 16 MG, QD (32 MG, 1/2 TAB)
     Route: 048
  3. SYNAGIS [Concomitant]
     Active Substance: PALIVIZUMAB

REACTIONS (2)
  - Congenital heart valve disorder [Recovered/Resolved]
  - Off label use [Unknown]
